FAERS Safety Report 8313923-8 (Version None)
Quarter: 2012Q2

REPORT INFORMATION
  Report Type: 
  Country: None (occurrence: None)
  Receive Date: 20120426
  Receipt Date: 20120426
  Transmission Date: 20120825
  Serious: Yes (Life-Threatening, Hospitalization)
  Sender: FDA-Public Use
  Company Number: None

PATIENT
  Sex: Female
  Weight: 100.69 kg

DRUGS (1)
  1. VICTOZA [Suspect]
     Indication: DIABETES MELLITUS INADEQUATE CONTROL
     Dosage: .6 MG PER DAY.
     Route: 058
     Dates: start: 20120417, end: 20120424

REACTIONS (8)
  - HYPOTENSION [None]
  - DIARRHOEA [None]
  - RENAL FAILURE [None]
  - NAUSEA [None]
  - MALAISE [None]
  - HYPOPHAGIA [None]
  - DIZZINESS [None]
  - DEHYDRATION [None]
